FAERS Safety Report 10141517 (Version 1)
Quarter: 2014Q2

REPORT INFORMATION
  Report Type: Report from Study
  Country: GB (occurrence: GB)
  Receive Date: 20140429
  Receipt Date: 20140429
  Transmission Date: 20141212
  Serious: Yes (Hospitalization, Other)
  Sender: FDA-Public Use
  Company Number: GB-ABBVIE-14P-167-1227829-00

PATIENT
  Sex: 0

DRUGS (2)
  1. HUMIRA [Suspect]
     Indication: CROHN^S DISEASE
  2. NEXIUM BAND-AID [Concomitant]
     Indication: PRODUCT USED FOR UNKNOWN INDICATION

REACTIONS (17)
  - Cheilitis granulomatosa [Unknown]
  - Lip swelling [Unknown]
  - Ileostomy [Unknown]
  - Gastric disorder [Unknown]
  - Skin disorder [Unknown]
  - Lip swelling [Unknown]
  - Abdominal pain upper [Not Recovered/Not Resolved]
  - Activities of daily living impaired [Unknown]
  - Emotional distress [Unknown]
  - Emotional distress [Unknown]
  - Emotional distress [Unknown]
  - Malaise [Unknown]
  - Investigation [Unknown]
  - Unevaluable event [Unknown]
  - Crohn^s disease [Unknown]
  - Unevaluable event [Unknown]
  - Malaise [Unknown]
